FAERS Safety Report 6732465-4 (Version None)
Quarter: 2010Q2

REPORT INFORMATION
  Report Type: 
  Country: None (occurrence: None)
  Receive Date: 20100519
  Receipt Date: 20100513
  Transmission Date: 20101027
  Serious: Yes (Hospitalization, Other)
  Sender: FDA-Public Use
  Company Number: GXBR2010US00708

PATIENT
  Sex: Female
  Weight: 49.887 kg

DRUGS (3)
  1. NITROFURANTOIN CAPSULES USP (NGX) [Suspect]
     Indication: URINARY TRACT INFECTION
     Dosage: 100 MG, BID
     Route: 048
     Dates: start: 20091221, end: 20091227
  2. ADVIL [Concomitant]
  3. ACETAMINOPHEN [Concomitant]

REACTIONS (12)
  - ABDOMINAL DISTENSION [None]
  - ABDOMINAL PAIN [None]
  - CHILLS [None]
  - CHOLECYSTECTOMY [None]
  - CHOLECYSTITIS [None]
  - DYSPEPSIA [None]
  - HEPATIC ENZYME INCREASED [None]
  - HEPATITIS [None]
  - OEDEMA PERIPHERAL [None]
  - PAIN [None]
  - PYREXIA [None]
  - WEIGHT INCREASED [None]
